FAERS Safety Report 21870424 (Version 1)
Quarter: 2023Q1

REPORT INFORMATION
  Report Type: Report from Study
  Country: US (occurrence: US)
  Receive Date: 20230117
  Receipt Date: 20230117
  Transmission Date: 20230417
  Serious: Yes (Hospitalization)
  Sender: FDA-Public Use
  Company Number: US-BAUSCH-BL-2023-000665

PATIENT
  Age: 46 Year
  Sex: Male

DRUGS (1)
  1. XIFAXAN [Suspect]
     Active Substance: RIFAXIMIN
     Indication: Product used for unknown indication
     Route: 048
     Dates: start: 20210819

REACTIONS (4)
  - Ammonia increased [Unknown]
  - Thrombosis [Unknown]
  - Abdominal distension [Unknown]
  - Pain in extremity [Unknown]
